FAERS Safety Report 11138784 (Version 1)
Quarter: 2015Q2

REPORT INFORMATION
  Report Type: Spontaneous
  Country: NO (occurrence: GB)
  Receive Date: 20150527
  Receipt Date: 20150527
  Transmission Date: 20150821
  Serious: Yes (Death, Hospitalization)
  Sender: FDA-Public Use
  Company Number: GB-HOSPIRA-2875658

PATIENT
  Age: 69 Year
  Sex: Female

DRUGS (4)
  1. HIPREX [Concomitant]
     Active Substance: METHENAMINE HIPPURATE
     Indication: PRODUCT USED FOR UNKNOWN INDICATION
     Route: 048
  2. PACLITAXEL HOSPIRA [Suspect]
     Active Substance: PACLITAXEL
     Indication: BREAST CANCER
     Dosage: ONLY ONE DOSE ADMINISTERED
     Route: 051
     Dates: start: 20141127, end: 20141127
  3. NEXIUM [Concomitant]
     Active Substance: ESOMEPRAZOLE MAGNESIUM
     Indication: PRODUCT USED FOR UNKNOWN INDICATION
     Route: 048
  4. IMOVANE [Concomitant]
     Active Substance: ZOPICLONE
     Indication: PRODUCT USED FOR UNKNOWN INDICATION
     Route: 048

REACTIONS (10)
  - Lung disorder [Fatal]
  - Neutropenia [Fatal]
  - Headache [Fatal]
  - Abdominal pain upper [Fatal]
  - Diarrhoea [Unknown]
  - Respiratory failure [Fatal]
  - Pyrexia [Fatal]
  - Cough [Fatal]
  - Syncope [Fatal]
  - Epistaxis [Fatal]

NARRATIVE: CASE EVENT DATE: 20141204
